FAERS Safety Report 25943455 (Version 2)
Quarter: 2025Q4

REPORT INFORMATION
  Report Type: Spontaneous
  Country: JP (occurrence: JP)
  Receive Date: 20251021
  Receipt Date: 20251103
  Transmission Date: 20260117
  Serious: Yes (Death, Other)
  Sender: ROCHE
  Company Number: JP-ROCHE-10000414085

PATIENT
  Age: 94 Year
  Sex: Female

DRUGS (1)
  1. XOFLUZA [Suspect]
     Active Substance: BALOXAVIR MARBOXIL
     Indication: Product used for unknown indication
     Route: 048
     Dates: start: 20240209, end: 20240209

REACTIONS (4)
  - Nervous system disorder [Fatal]
  - Paresis [Recovered/Resolved]
  - Language disorder [Recovered/Resolved]
  - Depressed level of consciousness [Recovered/Resolved]
